FAERS Safety Report 7087911-6 (Version None)
Quarter: 2010Q4

REPORT INFORMATION
  Report Type: 
  Country: None (occurrence: None)
  Receive Date: 20101108
  Receipt Date: 20101026
  Transmission Date: 20110411
  Serious: Yes (Hospitalization, Other)
  Sender: FDA-Public Use
  Company Number: US-US-EMD SERONO, INC.-7024652

PATIENT
  Sex: Female
  Weight: 66 kg

DRUGS (4)
  1. REBIF [Suspect]
     Indication: MULTIPLE SCLEROSIS
     Route: 058
  2. ZANTAC [Concomitant]
     Dates: end: 20100101
  3. DEXILANT [Concomitant]
     Dates: start: 20100101
  4. CYMBALTA [Concomitant]

REACTIONS (8)
  - BLOOD CHOLESTEROL INCREASED [None]
  - CEREBROVASCULAR ACCIDENT [None]
  - FASCIITIS [None]
  - INFLUENZA LIKE ILLNESS [None]
  - INTENTIONAL OVERDOSE [None]
  - SELF-INJURIOUS IDEATION [None]
  - STRESS [None]
  - VITREOUS FLOATERS [None]
